FAERS Safety Report 17510178 (Version 9)
Quarter: 2021Q1

REPORT INFORMATION
  Report Type: Spontaneous
  Country: US (occurrence: US)
  Receive Date: 20200306
  Receipt Date: 20210106
  Transmission Date: 20210419
  Serious: No
  Sender: FDA-Public Use
  Company Number: US-PFIZER INC-2020099662

PATIENT
  Age: 65 Year
  Sex: Male
  Weight: 102 kg

DRUGS (3)
  1. PREGABALIN. [Suspect]
     Active Substance: PREGABALIN
     Indication: NEURALGIA
     Dosage: 100 MG, UNK
  2. FISH OIL [Concomitant]
     Active Substance: FISH OIL
     Indication: COAGULATION TIME PROLONGED
     Dosage: 2 DF, DAILY
  3. FISH OIL [Concomitant]
     Active Substance: FISH OIL
     Dosage: 3 DF, DAILY

REACTIONS (8)
  - Headache [Unknown]
  - Nightmare [Unknown]
  - Depression [Unknown]
  - Limb discomfort [Unknown]
  - Drug hypersensitivity [Unknown]
  - Nervousness [Unknown]
  - Drug ineffective [Unknown]
  - Blood viscosity increased [Unknown]
